FAERS Safety Report 9157295 (Version 1)
Quarter: 2013Q1

REPORT INFORMATION
  Report Type: Spontaneous
  Country: US (occurrence: US)
  Receive Date: 20130312
  Receipt Date: 20130312
  Transmission Date: 20140127
  Serious: Yes (Other)
  Sender: FDA-Public Use
  Company Number: US-BRISTOL-MYERS SQUIBB COMPANY-17144718

PATIENT
  Age: 89 Year
  Sex: Female

DRUGS (5)
  1. COUMADIN TABS 5 MG [Suspect]
  2. NEXIUM [Concomitant]
  3. DIOVAN [Concomitant]
  4. PULMICORT [Concomitant]
  5. XANAX [Concomitant]

REACTIONS (8)
  - Blue toe syndrome [Unknown]
  - Arthralgia [Unknown]
  - International normalised ratio fluctuation [Unknown]
  - Pain in extremity [Unknown]
  - Hypotension [Unknown]
  - Back disorder [Recovering/Resolving]
  - Feeling abnormal [Unknown]
  - Skin lesion [Unknown]
